FAERS Safety Report 13559406 (Version 1)
Quarter: 2017Q2

REPORT INFORMATION
  Report Type: Spontaneous
  Country: US (occurrence: US)
  Receive Date: 20170518
  Receipt Date: 20170518
  Transmission Date: 20170830
  Serious: No
  Sender: FDA-Public Use
  Company Number: US-LUPIN PHARMACEUTICALS INC.-E2B_00005376

PATIENT
  Sex: Female
  Weight: 52.16 kg

DRUGS (3)
  1. QUETIAPINE TABLETS USP, 100 MG [Suspect]
     Active Substance: QUETIAPINE
     Indication: SLEEP DISORDER
  2. XANAX [Concomitant]
     Active Substance: ALPRAZOLAM
     Indication: ANXIETY
     Dosage: UNK UNK,PRN,
     Route: 048
     Dates: start: 201601
  3. QUETIAPINE TABLETS USP, 100 MG [Suspect]
     Active Substance: QUETIAPINE
     Indication: DEPRESSION
     Dosage: 3 DF,QD,
     Route: 048
     Dates: start: 201601

REACTIONS (2)
  - Drug ineffective for unapproved indication [Unknown]
  - Off label use [Unknown]
